FAERS Safety Report 5321723-6 (Version None)
Quarter: 2007Q2

REPORT INFORMATION
  Report Type: 
  Country: None (occurrence: None)
  Receive Date: 20070510
  Receipt Date: 20070502
  Transmission Date: 20071010
  Serious: Yes (Other)
  Sender: FDA-Public Use
  Company Number: US-PFIZER INC-2007036030

PATIENT
  Sex: Male
  Weight: 90.909 kg

DRUGS (8)
  1. CHANTIX [Suspect]
     Indication: SMOKING CESSATION THERAPY
  2. GLUCOTROL [Concomitant]
  3. RISPERDAL [Concomitant]
  4. CITALOPRAM HYDROBROMIDE [Concomitant]
  5. HYDROCHLOROTHIAZIDE [Concomitant]
  6. NPH INSULIN [Concomitant]
     Indication: DIABETES MELLITUS
  7. INSULIN HUMAN [Concomitant]
     Indication: DIABETES MELLITUS
  8. ALL OTHER THERAPEUTIC PRODUCTS [Concomitant]

REACTIONS (1)
  - BLOOD GLUCOSE INCREASED [None]
